FAERS Safety Report 20663415 (Version 3)
Quarter: 2022Q3

REPORT INFORMATION
  Report Type: Report from Study
  Country: NL (occurrence: NL)
  Receive Date: 20220401
  Receipt Date: 20220707
  Transmission Date: 20221027
  Serious: Yes (Other)
  Sender: FDA-Public Use
  Company Number: NL-GLAXOSMITHKLINE-NL2022GSK054235

PATIENT

DRUGS (5)
  1. NIRAPARIB [Suspect]
     Active Substance: NIRAPARIB
     Indication: Ovarian epithelial cancer recurrent
     Dosage: 200 MG, QD
     Route: 048
     Dates: start: 20211217, end: 20211224
  2. NIRAPARIB [Suspect]
     Active Substance: NIRAPARIB
     Indication: Fallopian tube cancer
  3. NIRAPARIB [Suspect]
     Active Substance: NIRAPARIB
     Indication: Malignant peritoneal neoplasm
  4. PACLITAXEL [Concomitant]
     Active Substance: PACLITAXEL
     Indication: Ovarian cancer
     Dosage: 300 MG (NO. OF CYCLES-6)
     Route: 042
     Dates: start: 20210811, end: 20211124
  5. CARBOPLATIN [Concomitant]
     Active Substance: CARBOPLATIN
     Indication: Ovarian cancer
     Dosage: 500 MG,  (NO. OF CYCLES-6)
     Route: 042
     Dates: start: 20210811, end: 20211124

REACTIONS (2)
  - Atrial fibrillation [Not Recovered/Not Resolved]
  - Urinary tract infection [Not Recovered/Not Resolved]

NARRATIVE: CASE EVENT DATE: 20211218
